FAERS Safety Report 23060690 (Version 3)
Quarter: 2023Q4

REPORT INFORMATION
  Report Type: Report from Study
  Country: US (occurrence: US)
  Receive Date: 20231012
  Receipt Date: 20231025
  Transmission Date: 20240109
  Serious: Yes (Other)
  Sender: FDA-Public Use
  Company Number: US-REGENERON PHARMACEUTICALS, INC.-2023-124674

PATIENT
  Sex: Female

DRUGS (4)
  1. CEMIPLIMAB [Suspect]
     Active Substance: CEMIPLIMAB
     Indication: Squamous cell carcinoma of skin
     Dosage: 350 MG, Q3W
     Route: 042
     Dates: start: 202308
  2. COVID-19 VACCINE [Concomitant]
     Indication: Product used for unknown indication
  3. TRIAMTERENE [Concomitant]
     Active Substance: TRIAMTERENE
     Indication: Blood pressure measurement
  4. LOSARTAN [Concomitant]
     Active Substance: LOSARTAN
     Indication: Blood pressure measurement

REACTIONS (11)
  - Movement disorder [Unknown]
  - Joint stiffness [Not Recovered/Not Resolved]
  - Pain [Not Recovered/Not Resolved]
  - Pain [Unknown]
  - Cystitis [Unknown]
  - Eczema [Not Recovered/Not Resolved]
  - Nausea [Unknown]
  - Myalgia [Unknown]
  - Blister [Unknown]
  - Arthralgia [Unknown]
  - Stomatitis [Unknown]

NARRATIVE: CASE EVENT DATE: 20230801
